FAERS Safety Report 8902244 (Version 3)
Quarter: 2012Q4

REPORT INFORMATION
  Report Type: 
  Country: MX (occurrence: MX)
  Receive Date: 20121113
  Receipt Date: 20121205
  Transmission Date: 20130627
  Serious: Yes (Hospitalization)
  Sender: FDA-Public Use
  Company Number: PHHY2012MX103642

PATIENT
  Age: 43 Year
  Sex: Female

DRUGS (3)
  1. CIPROFLOXACIN [Suspect]
     Indication: URINARY TRACT INFECTION
  2. DICLOFENAC [Suspect]
     Indication: URINARY TRACT INFECTION
  3. DIPYRONE [Suspect]
     Indication: URINARY TRACT INFECTION

REACTIONS (12)
  - Toxic epidermal necrolysis [Recovering/Resolving]
  - Hyperthermia [Recovering/Resolving]
  - Dermatitis [Recovering/Resolving]
  - Erythema [Recovering/Resolving]
  - Scab [Recovering/Resolving]
  - Oral mucosal blistering [Recovering/Resolving]
  - Blister [Recovering/Resolving]
  - Conjunctival hyperaemia [Recovering/Resolving]
  - Skin hyperpigmentation [Unknown]
  - Skin hypopigmentation [Unknown]
  - Decreased appetite [Recovering/Resolving]
  - General physical health deterioration [Recovering/Resolving]
